FAERS Safety Report 9303693 (Version 1)
Quarter: 2013Q2

REPORT INFORMATION
  Report Type: Spontaneous
  Country: US (occurrence: US)
  Receive Date: 20130522
  Receipt Date: 20130522
  Transmission Date: 20140414
  Serious: Yes (Hospitalization)
  Sender: FDA-Public Use
  Company Number: US-GLAXOSMITHKLINE-A0688722A

PATIENT
  Age: 55 Year
  Sex: Male
  Weight: 113.6 kg

DRUGS (8)
  1. AVANDIA [Suspect]
     Indication: TYPE 2 DIABETES MELLITUS
     Dosage: 4MG PER DAY
     Route: 048
     Dates: start: 2000, end: 200610
  2. HUMALOG [Concomitant]
     Dates: start: 1990
  3. INSULIN [Concomitant]
     Dates: start: 1990
  4. ZOCOR [Concomitant]
     Dates: start: 1995
  5. NITROGLYCERIN [Concomitant]
     Dates: start: 1990
  6. NIASPAN [Concomitant]
  7. FLOMAX [Concomitant]
  8. POTASSIUM [Concomitant]

REACTIONS (4)
  - Myocardial infarction [Unknown]
  - Cardiac failure congestive [Unknown]
  - Pain [Unknown]
  - Injury [Unknown]
